FAERS Safety Report 4793429-3 (Version None)
Quarter: 2005Q4

REPORT INFORMATION
  Report Type: 
  Country: None (occurrence: None)
  Receive Date: 20051011
  Receipt Date: 20041005
  Transmission Date: 20060501
  Serious: Yes (Other)
  Sender: FDA-Public Use
  Company Number: US-BRISTOL-MYERS SQUIBB COMPANY-12722765

PATIENT
  Age: 37 Year
  Sex: Female

DRUGS (3)
  1. GLUCOPHAGE XR [Suspect]
     Indication: DIABETES MELLITUS
     Route: 048
  2. VERAPAMIL [Concomitant]
  3. ALTACE [Concomitant]

REACTIONS (1)
  - LACTIC ACIDOSIS [None]
